FAERS Safety Report 8325179-0 (Version None)
Quarter: 2012Q2

REPORT INFORMATION
  Report Type: 
  Country: None (occurrence: None)
  Receive Date: 20120427
  Receipt Date: 20120419
  Transmission Date: 20120825
  Serious: Yes (Hospitalization, Other)
  Sender: FDA-Public Use
  Company Number: VAL_00746_2012

PATIENT
  Age: 17 Year
  Sex: Female

DRUGS (6)
  1. TOPIRAMATE [Concomitant]
  2. CARBAMAZEPINE [Suspect]
     Indication: PARTIAL SEIZURES
     Dosage: SEE IMAGE,
  3. CARBAMAZEPINE [Suspect]
     Indication: PARTIAL SEIZURES
     Dosage: SEE IMAGE,
  4. CARBAMAZEPINE [Suspect]
     Indication: PARTIAL SEIZURES
     Dosage: SEE IMAGE,
  5. VALPROATE SODIUM [Concomitant]
  6. LEVETIRACETAM [Concomitant]

REACTIONS (5)
  - IDIOPATHIC THROMBOCYTOPENIC PURPURA [None]
  - CONVULSION [None]
  - UPPER RESPIRATORY TRACT INFECTION [None]
  - HAEMATURIA [None]
  - MEGAKARYOCYTES [None]
